FAERS Safety Report 24458148 (Version 5)
Quarter: 2025Q1

REPORT INFORMATION
  Report Type: Report from Study
  Country: CA (occurrence: CA)
  Receive Date: 20241018
  Receipt Date: 20250203
  Transmission Date: 20250409
  Serious: Yes (Other)
  Sender: ARGENX BVBA
  Company Number: CA-ARGENX-2024-ARGX-CA008587

PATIENT

DRUGS (19)
  1. EFGARTIGIMOD ALFA [Suspect]
     Active Substance: EFGARTIGIMOD ALFA
     Indication: Myasthenia gravis
     Route: 042
     Dates: start: 20240816
  2. EFGARTIGIMOD ALFA [Suspect]
     Active Substance: EFGARTIGIMOD ALFA
     Route: 042
     Dates: start: 20241011
  3. EFGARTIGIMOD ALFA [Suspect]
     Active Substance: EFGARTIGIMOD ALFA
     Route: 042
  4. EFGARTIGIMOD ALFA [Suspect]
     Active Substance: EFGARTIGIMOD ALFA
     Route: 042
     Dates: start: 20250124
  5. PREDNISONE [Suspect]
     Active Substance: PREDNISONE
     Indication: Myasthenia gravis
     Dosage: 10 MG, DAILY (DIE)
     Route: 048
     Dates: start: 1993
  6. MYCOPHENOLATE MOFETIL [Suspect]
     Active Substance: MYCOPHENOLATE MOFETIL
     Indication: Myasthenia gravis
     Dosage: UNK, 100-500 MG BID
     Route: 048
     Dates: start: 2015
  7. AZATHIOPRINE [Suspect]
     Active Substance: AZATHIOPRINE
     Indication: Product used for unknown indication
     Route: 065
  8. SULFASALAZINE [Concomitant]
     Active Substance: SULFASALAZINE
     Indication: Product used for unknown indication
     Route: 065
  9. CELLCEPT [Concomitant]
     Active Substance: MYCOPHENOLATE MOFETIL
     Indication: Product used for unknown indication
     Dosage: 2500 MG, DAILY (DIE)
     Route: 065
  10. MESTINON [Concomitant]
     Active Substance: PYRIDOSTIGMINE BROMIDE
     Indication: Product used for unknown indication
     Dosage: 60 MG, BID
     Route: 065
  11. MESTINON [Concomitant]
     Active Substance: PYRIDOSTIGMINE BROMIDE
     Route: 065
  12. DEXILANT [Concomitant]
     Active Substance: DEXLANSOPRAZOLE
     Indication: Product used for unknown indication
     Route: 065
  13. FOSAMAX [Concomitant]
     Active Substance: ALENDRONATE SODIUM
     Indication: Product used for unknown indication
     Route: 065
  14. HYDREA [Concomitant]
     Active Substance: HYDROXYUREA
     Indication: Product used for unknown indication
     Route: 065
  15. METOPROLOL [Concomitant]
     Active Substance: METOPROLOL
     Indication: Product used for unknown indication
     Route: 065
  16. ASPIRIN [Concomitant]
     Active Substance: ASPIRIN
     Indication: Product used for unknown indication
     Route: 065
  17. VITAMIN D NOS [Concomitant]
     Active Substance: CHOLECALCIFEROL\ERGOCALCIFEROL
     Indication: Product used for unknown indication
     Route: 065
  18. Ca [Concomitant]
     Indication: Product used for unknown indication
     Route: 065
  19. MAGNESIUM [Concomitant]
     Active Substance: MAGNESIUM
     Indication: Product used for unknown indication
     Route: 065

REACTIONS (10)
  - Dyspnoea [Unknown]
  - Mitral valve incompetence [Unknown]
  - Immunosuppression [Unknown]
  - Ophthalmic herpes zoster [Recovered/Resolved]
  - Pulmonary mass [Unknown]
  - Emotional distress [Unknown]
  - Dyspnoea exertional [Unknown]
  - Fatigue [Unknown]
  - Urinary tract infection [Unknown]
  - Urinary tract infection [Recovered/Resolved]

NARRATIVE: CASE EVENT DATE: 20240901
